FAERS Safety Report 11719641 (Version 1)
Quarter: 2015Q4

REPORT INFORMATION
  Report Type: Spontaneous
  Country: US (occurrence: None)
  Receive Date: 20151109
  Receipt Date: 20151109
  Transmission Date: 20160304
  Serious: Yes (Other)
  Sender: FDA-Public Use
  Company Number: None

PATIENT
  Age: 64 Year

DRUGS (1)
  1. LAMOTRIGINE. [Suspect]
     Active Substance: LAMOTRIGINE
     Indication: AFFECTIVE DISORDER
     Dosage: 1 DAILY FOR TWO WEEKS THEN 2 D
     Route: 048
     Dates: start: 20150916, end: 20151107

REACTIONS (3)
  - Pain [None]
  - Mouth ulceration [None]
  - Impaired healing [None]

NARRATIVE: CASE EVENT DATE: 20151020
